FAERS Safety Report 5998016-7 (Version None)
Quarter: 2008Q4

REPORT INFORMATION
  Report Type: 
  Country: None (occurrence: None)
  Receive Date: 20081211
  Receipt Date: 20081201
  Transmission Date: 20090506
  Serious: Yes (Hospitalization)
  Sender: FDA-Public Use
  Company Number: MEDI-0007569

PATIENT
  Age: 38 Month
  Sex: Male

DRUGS (1)
  1. SYNAGIS [Suspect]
     Indication: CHRONIC OBSTRUCTIVE PULMONARY DISEASE
     Dosage: INTRAMUSCULAR
     Route: 030
     Dates: start: 20081125, end: 20081125

REACTIONS (1)
  - GRAND MAL CONVULSION [None]
